FAERS Safety Report 8252897-5 (Version None)
Quarter: 2012Q2

REPORT INFORMATION
  Report Type: 
  Country: None (occurrence: None)
  Receive Date: 20120402
  Receipt Date: 20120209
  Transmission Date: 20120825
  Serious: No
  Sender: FDA-Public Use
  Company Number: US-ABBOTT-12P-163-0904537-00

PATIENT
  Age: 57 Year
  Sex: Male
  Weight: 81.72 kg

DRUGS (4)
  1. FLAGYL [Concomitant]
     Indication: ANTIBIOTIC PROPHYLAXIS
  2. ANDROGEL [Suspect]
     Indication: BLOOD TESTOSTERONE DECREASED
     Dosage: 3 PACKETS PER DAY
     Dates: start: 20020101
  3. FLAGYL [Concomitant]
     Indication: GASTROINTESTINAL INFECTION
  4. METAMUCIL-2 [Concomitant]
     Indication: PRODUCT USED FOR UNKNOWN INDICATION

REACTIONS (3)
  - BLOOD TESTOSTERONE DECREASED [None]
  - DRY SKIN [None]
  - SENSORY DISTURBANCE [None]
